FAERS Safety Report 5646626-9 (Version None)
Quarter: 2008Q1

REPORT INFORMATION
  Report Type: 
  Country: None (occurrence: None)
  Receive Date: 20080303
  Receipt Date: 20080221
  Transmission Date: 20080703
  Serious: Yes (Hospitalization)
  Sender: FDA-Public Use
  Company Number: PHHY2008JP00961

PATIENT
  Age: 21 Year
  Sex: Male

DRUGS (1)
  1. GLEEVEC [Suspect]
     Indication: GASTROINTESTINAL STROMAL TUMOUR
     Dosage: 400 MG/DAY
     Route: 048
     Dates: start: 20071227, end: 20080108

REACTIONS (5)
  - ANOREXIA [None]
  - HYPERPYREXIA [None]
  - MEASLES [None]
  - MEASLES ANTIBODY POSITIVE [None]
  - RASH GENERALISED [None]
